FAERS Safety Report 23883860 (Version 2)
Quarter: 2024Q3

REPORT INFORMATION
  Report Type: Spontaneous
  Country: NL (occurrence: NL)
  Receive Date: 20240522
  Receipt Date: 20240722
  Transmission Date: 20241017
  Serious: Yes (Hospitalization, Other)
  Sender: ACCORD
  Company Number: None

PATIENT
  Age: 38 Month
  Sex: Male
  Weight: 17.5 kg

DRUGS (7)
  1. PRAVASTATIN SODIUM [Suspect]
     Active Substance: PRAVASTATIN SODIUM
     Indication: Hypercholesterolaemia
     Dosage: SINCE 10-4-24 1DD10MG
     Dates: start: 20240410
  2. CEFUROXIME [Concomitant]
     Active Substance: CEFUROXIME
     Dates: start: 20240416, end: 20240418
  3. AZITHROMYCIN [Concomitant]
     Active Substance: AZITHROMYCIN
     Dosage: ORAL SUSPENSION 40 MG/ML
     Dates: start: 20240413
  4. METHYLPREDNISOLONE [Concomitant]
     Active Substance: METHYLPREDNISOLONE
     Dates: start: 20240418, end: 20240420
  5. IMMUNOGLOBULIN [Concomitant]
     Dosage: INFUSION
     Dates: start: 20240412, end: 20240412
  6. CEFUROXIME [Concomitant]
     Active Substance: CEFUROXIME
     Dosage: INFUSION
     Dates: start: 20240412, end: 20240416
  7. PRAVASTATIN SODIUM [Suspect]
     Active Substance: PRAVASTATIN SODIUM
     Indication: Hypercholesterolaemia
     Dosage: 1DD5 MG, USED INTERMITTENTLY
     Dates: start: 20240305, end: 20240419

REACTIONS (2)
  - Respiratory failure [Recovering/Resolving]
  - Interstitial lung disease [Recovering/Resolving]
